FAERS Safety Report 7517261-2 (Version None)
Quarter: 2011Q2

REPORT INFORMATION
  Report Type: 
  Country: None (occurrence: None)
  Receive Date: 20110601
  Receipt Date: 20110525
  Transmission Date: 20111010
  Serious: Yes (Other)
  Sender: FDA-Public Use
  Company Number: US-ELI_LILLY_AND_COMPANY-US200812001390

PATIENT
  Sex: Female
  Weight: 90.703 kg

DRUGS (8)
  1. METFORMIN HCL [Concomitant]
     Indication: TYPE 2 DIABETES MELLITUS
  2. LOVASTATIN [Concomitant]
     Indication: HYPERTENSION
  3. CAPTOPRIL [Concomitant]
     Indication: HYPERTENSION
  4. AVANDIA [Concomitant]
     Indication: DIABETES MELLITUS
     Dosage: UNK
     Dates: start: 20070101, end: 20101001
  5. ASPIRIN [Concomitant]
     Dosage: UNK, DAILY (1/D)
  6. GLIPIZIDE [Concomitant]
     Indication: TYPE 2 DIABETES MELLITUS
  7. BYETTA [Suspect]
     Dosage: 5 UG, 2/D
     Dates: start: 20080825, end: 20080925
  8. OMEPRAZOLE [Concomitant]
     Indication: DYSPEPSIA

REACTIONS (10)
  - DECREASED APPETITE [None]
  - ABDOMINAL PAIN [None]
  - VOMITING [None]
  - MALAISE [None]
  - NAUSEA [None]
  - ASTHENIA [None]
  - HYPERHIDROSIS [None]
  - WEIGHT DECREASED [None]
  - PANCREATITIS [None]
  - LABORATORY TEST ABNORMAL [None]
